FAERS Safety Report 7966629-9 (Version None)
Quarter: 2011Q4

REPORT INFORMATION
  Report Type: 
  Country: None (occurrence: None)
  Receive Date: 20111209
  Receipt Date: 20111201
  Transmission Date: 20120403
  Serious: Yes (Hospitalization)
  Sender: FDA-Public Use
  Company Number: US-BIOGENIDEC-2011BI045925

PATIENT
  Age: 58 Year
  Sex: Male

DRUGS (4)
  1. AVONEX [Suspect]
     Indication: MULTIPLE SCLEROSIS
     Route: 030
     Dates: start: 20111024, end: 20111024
  2. AVONEX [Suspect]
     Route: 030
     Dates: start: 20111114, end: 20111114
  3. AVONEX [Suspect]
     Route: 030
     Dates: start: 20111031, end: 20111031
  4. AVONEX [Suspect]
     Route: 030
     Dates: start: 20111107, end: 20111107

REACTIONS (4)
  - CHEST PAIN [None]
  - HEADACHE [None]
  - NAUSEA [None]
  - PLEURITIC PAIN [None]
